FAERS Safety Report 20826190 (Version 2)
Quarter: 2022Q2

REPORT INFORMATION
  Report Type: Spontaneous
  Country: GR (occurrence: GR)
  Receive Date: 20220513
  Receipt Date: 20220520
  Transmission Date: 20220721
  Serious: Yes (Hospitalization, Other)
  Sender: FDA-Public Use
  Company Number: GR-AMNEAL PHARMACEUTICALS-2022-AMRX-01251

PATIENT
  Age: 53 Year
  Sex: Male

DRUGS (5)
  1. ALBENZA [Suspect]
     Active Substance: ALBENDAZOLE
     Indication: Echinococciasis
     Dosage: 400 MILLIGRAM, EVERY 12HR
     Route: 048
     Dates: start: 20201120
  2. INSULIN GLARGINE [Concomitant]
     Active Substance: INSULIN GLARGINE
     Indication: Diabetes mellitus
     Dosage: UNKNOWN;BEFORE MAJOR MEALS
     Route: 065
  3. INSULIN HUMAN BIOSYNTHETIC [Concomitant]
     Indication: Diabetes mellitus
     Dosage: UNKNOWN;BEFORE MAJOR MEALS
     Route: 065
  4. HAEMOPHILUS B CONJUGATE VACCINE NOS [Concomitant]
     Active Substance: HAEMOPHILUS B CONJUGATE VACCINE
     Indication: Product used for unknown indication
     Dosage: UNK
     Route: 065
  5. PNEUMOCOCCAL VACCINE POLYVALENT NOS [Concomitant]
     Active Substance: PNEUMOCOCCAL VACCINE POLYVALENT
     Indication: Product used for unknown indication
     Dosage: UNK
     Route: 065

REACTIONS (4)
  - Drug-induced liver injury [Recovered/Resolved]
  - Hepatocellular injury [Recovered/Resolved]
  - Hepatotoxicity [Recovered/Resolved]
  - Transaminases increased [Recovered/Resolved]
